FAERS Safety Report 14764702 (Version 2)
Quarter: 2018Q4

REPORT INFORMATION
  Report Type: Report from Study
  Country: US (occurrence: US)
  Receive Date: 20180416
  Receipt Date: 20181031
  Transmission Date: 20190204
  Serious: Yes (Other)
  Sender: FDA-Public Use
  Company Number: PHEH2018US014565

PATIENT
  Sex: Female

DRUGS (1)
  1. GILENYA [Suspect]
     Active Substance: FINGOLIMOD HYDROCHLORIDE
     Indication: MULTIPLE SCLEROSIS
     Dosage: 0.5 MG, QD
     Route: 048
     Dates: start: 20170929

REACTIONS (9)
  - Headache [Unknown]
  - Abdominal pain [Not Recovered/Not Resolved]
  - Haemorrhoids [Unknown]
  - Dizziness [Recovered/Resolved]
  - Pain in extremity [Not Recovered/Not Resolved]
  - Depression [Recovering/Resolving]
  - Dyspnoea [Not Recovered/Not Resolved]
  - Suicidal ideation [Recovering/Resolving]
  - Constipation [Unknown]
